FAERS Safety Report 9167973 (Version 3)
Quarter: 2013Q1

REPORT INFORMATION
  Report Type: Report from Study
  Country: AU (occurrence: AU)
  Receive Date: 20130318
  Receipt Date: 20130322
  Transmission Date: 20140127
  Serious: Yes (Hospitalization)
  Sender: FDA-Public Use
  Company Number: AU-ASTRAZENECA-2012SE27817

PATIENT
  Age: 21371 Day
  Sex: Female
  Weight: 60 kg

DRUGS (12)
  1. ARIMIDEX [Suspect]
     Indication: BREAST CANCER
     Route: 048
     Dates: start: 20120306, end: 20120419
  2. ARIMIDEX [Suspect]
     Indication: BREAST CANCER
     Route: 048
     Dates: start: 20120815, end: 20121008
  3. RADIOTHERAPY [Suspect]
     Indication: BREAST CANCER
     Dosage: TOTAL DOSE 46 GY/ DOSE FRACTION 2
     Route: 065
     Dates: start: 20120315, end: 20120419
  4. ESOMEPRAZOLE [Concomitant]
     Indication: GASTROOESOPHAGEAL REFLUX DISEASE
     Route: 048
  5. DESVENLAFAXINE [Concomitant]
     Indication: DEPRESSION
     Route: 048
  6. PANTOPRAZOLE [Concomitant]
     Indication: GASTROOESOPHAGEAL REFLUX DISEASE
     Route: 048
  7. NAPROXEN [Concomitant]
  8. NAPROXEN [Concomitant]
  9. NAPROXEN [Concomitant]
  10. PARACETAMOL [Concomitant]
     Route: 048
  11. COLCHICINE [Concomitant]
     Route: 048
  12. MOVICOL [Concomitant]
     Dosage: ONE SACHET
     Route: 048

REACTIONS (1)
  - Pericarditis [Recovered/Resolved]
